FAERS Safety Report 7691076-7 (Version None)
Quarter: 2011Q3

REPORT INFORMATION
  Report Type: 
  Country: None (occurrence: None)
  Receive Date: 20110817
  Receipt Date: 20110817
  Transmission Date: 20111222
  Serious: Yes (Life-Threatening, Hospitalization)
  Sender: FDA-Public Use
  Company Number: None

PATIENT
  Age: 35 Year
  Sex: Female
  Weight: 101.5 kg

DRUGS (2)
  1. KETOROLAC TROMETHAMINE [Suspect]
     Indication: SURGERY
     Dosage: 30 MG ONCE IV
     Route: 042
     Dates: start: 20110811, end: 20110811
  2. KETOROLAC TROMETHAMINE [Suspect]
     Indication: PAIN
     Dosage: 30 MG ONCE IV
     Route: 042
     Dates: start: 20110811, end: 20110811

REACTIONS (1)
  - ANAPHYLACTIC REACTION [None]
